FAERS Safety Report 18745160 (Version 1)
Quarter: 2021Q1

REPORT INFORMATION
  Report Type: Spontaneous
  Country: US (occurrence: US)
  Receive Date: 20210114
  Receipt Date: 20210114
  Transmission Date: 20210419
  Serious: Yes (Hospitalization)
  Sender: FDA-Public Use
  Company Number: None

PATIENT
  Age: 63 Year
  Sex: Female

DRUGS (1)
  1. CAPECITABINE. [Suspect]
     Active Substance: CAPECITABINE
     Indication: NEOPLASM MALIGNANT
     Dosage: DOSE: 3?500MG TABS EVERY MORNING AND 2?500MG TABS EVERY EVEVNING FOR 14 DAYS ON, THEN 7 DAYS OFF
     Route: 048
     Dates: start: 20200211

REACTIONS (1)
  - Central nervous system lesion [None]

NARRATIVE: CASE EVENT DATE: 20201221
